FAERS Safety Report 9799084 (Version 3)
Quarter: 2015Q3

REPORT INFORMATION
  Report Type: Spontaneous
  Country: US (occurrence: US)
  Receive Date: 20140106
  Receipt Date: 20150806
  Transmission Date: 20151125
  Serious: Yes (Other)
  Sender: FDA-Public Use
  Company Number: US-GILEAD-2010-0033110

PATIENT
  Age: 52 Year
  Sex: Male
  Weight: 68.4 kg

DRUGS (8)
  1. FUROSEMIDE. [Concomitant]
     Active Substance: FUROSEMIDE
     Indication: RIGHT VENTRICULAR FAILURE
  2. PANTOPRAZOLE [Concomitant]
     Active Substance: PANTOPRAZOLE SODIUM
  3. ATRIPLA [Concomitant]
     Active Substance: EFAVIRENZ\EMTRICITABINE\TENOFOVIR DISOPROXIL FUMARATE
     Indication: HIV INFECTION
  4. WARFARIN [Concomitant]
     Active Substance: WARFARIN
  5. BACTRIM DS [Concomitant]
     Active Substance: SULFAMETHOXAZOLE\TRIMETHOPRIM
  6. LETAIRIS [Suspect]
     Active Substance: AMBRISENTAN
     Indication: PULMONARY ARTERIAL HYPERTENSION
     Route: 048
     Dates: start: 20100916
  7. SILDENAFIL. [Concomitant]
     Active Substance: SILDENAFIL
     Indication: PULMONARY ARTERIAL HYPERTENSION
  8. SPIRONOLACTONE. [Concomitant]
     Active Substance: SPIRONOLACTONE
     Indication: RIGHT VENTRICULAR FAILURE

REACTIONS (5)
  - Flushing [Recovered/Resolved]
  - Swelling face [Recovered/Resolved]
  - Pharyngeal oedema [Recovered/Resolved]
  - Drug hypersensitivity [Recovered/Resolved]
  - Lip swelling [Recovered/Resolved]

NARRATIVE: CASE EVENT DATE: 201009
